FAERS Safety Report 7968176-7 (Version None)
Quarter: 2011Q4

REPORT INFORMATION
  Report Type: 
  Country: None (occurrence: None)
  Receive Date: 20111209
  Receipt Date: 20111205
  Transmission Date: 20120403
  Serious: Yes (Other)
  Sender: FDA-Public Use
  Company Number: PHEH2011US010146

PATIENT
  Sex: Female

DRUGS (3)
  1. ZANAFLEX [Concomitant]
     Dosage: 204 MG, QHS
     Route: 048
  2. ENABLEX [Concomitant]
  3. GILENYA [Suspect]
     Indication: MULTIPLE SCLEROSIS
     Dosage: 0.5 MG, QD
     Route: 048
     Dates: start: 20110921, end: 20111011

REACTIONS (3)
  - THROMBOCYTOPENIA [None]
  - SYNCOPE [None]
  - CONVULSION [None]
